FAERS Safety Report 14228293 (Version 2)
Quarter: 2017Q4

REPORT INFORMATION
  Report Type: Spontaneous
  Country: RU (occurrence: RU)
  Receive Date: 20171127
  Receipt Date: 20171220
  Transmission Date: 20180321
  Serious: Yes (Hospitalization, Other)
  Sender: FDA-Public Use
  Company Number: RU-ASTRAZENECA-2017SF19590

PATIENT
  Age: 49 Year
  Sex: Male
  Weight: 77 kg

DRUGS (5)
  1. CARDIOMAGNYL [Concomitant]
     Active Substance: ASPIRIN\MAGNESIUM HYDROXIDE
  2. BRILINTA [Suspect]
     Active Substance: TICAGRELOR
     Indication: MYOCARDIAL INFARCTION
     Route: 048
     Dates: start: 201702
  3. PERINDOPRIL [Concomitant]
     Active Substance: PERINDOPRIL
  4. ATORVASTATIN [Concomitant]
     Active Substance: ATORVASTATIN
  5. CONCOR COR [Concomitant]
     Active Substance: BISOPROLOL FUMARATE

REACTIONS (2)
  - Coronary bypass thrombosis [Unknown]
  - Vascular stent occlusion [Not Recovered/Not Resolved]
